FAERS Safety Report 15760528 (Version 1)
Quarter: 2018Q4

REPORT INFORMATION
  Report Type: Spontaneous
  Country: US (occurrence: US)
  Receive Date: 20181225
  Receipt Date: 20181225
  Transmission Date: 20190205
  Serious: Yes (Other)
  Sender: FDA-Public Use
  Company Number: None

PATIENT
  Age: 46 Year
  Sex: Female
  Weight: 141.75 kg

DRUGS (3)
  1. TOPIRAMATE 50MG  LOT# GKS1329 [Suspect]
     Active Substance: TOPIRAMATE
     Indication: WEIGHT DECREASED
     Dosage: ?          QUANTITY:30 TABLET(S);?
     Route: 048
     Dates: start: 20181030, end: 20181225
  2. PHENTERMINE. [Concomitant]
     Active Substance: PHENTERMINE
  3. RANITIDINE 300MG/DAY [Concomitant]

REACTIONS (4)
  - Suicidal ideation [None]
  - Emotional distress [None]
  - Feelings of worthlessness [None]
  - Depression [None]

NARRATIVE: CASE EVENT DATE: 20181224
